FAERS Safety Report 14637231 (Version 1)
Quarter: 2018Q1

REPORT INFORMATION
  Report Type: Report from Study
  Country: FR (occurrence: FR)
  Receive Date: 20180314
  Receipt Date: 20180314
  Transmission Date: 20180509
  Serious: Yes (Hospitalization)
  Sender: FDA-Public Use
  Company Number: FR-PFIZER INC-2018101790

PATIENT
  Age: 64 Year
  Sex: Male

DRUGS (15)
  1. MESTINON [Suspect]
     Active Substance: PYRIDOSTIGMINE BROMIDE
     Indication: MYASTHENIC SYNDROME
     Dosage: 180 MG (BID 2X/DAY)
     Route: 048
     Dates: start: 20090701
  2. SOLU-MEDROL [Suspect]
     Active Substance: METHYLPREDNISOLONE SODIUM SUCCINATE
     Dosage: 20 MG, UNK
     Route: 065
  3. FIRDAPSE [Suspect]
     Active Substance: AMIFAMPRIDINE PHOSPHATE
     Dosage: 40 MG, 4X/DAY
     Route: 048
     Dates: start: 20111208, end: 20130412
  4. FIRDAPSE [Suspect]
     Active Substance: AMIFAMPRIDINE PHOSPHATE
     Dosage: 80 MG, 4X/DAY
     Route: 048
     Dates: start: 20130414
  5. CORTANCYL [Suspect]
     Active Substance: PREDNISONE
     Dosage: 20 MG, (QD 1X/DAY)
     Route: 065
     Dates: start: 20130210, end: 20130601
  6. CLAIRYG [Suspect]
     Active Substance: HUMAN IMMUNOGLOBULIN G
     Indication: MYASTHENIC SYNDROME
     Dosage: 160 MG, UNK
     Route: 065
     Dates: start: 20130205, end: 20130722
  7. CORTANCYL [Suspect]
     Active Substance: PREDNISONE
     Indication: MYASTHENIC SYNDROME
     Dosage: 30 MG, BID
     Route: 065
     Dates: start: 20121120, end: 20121126
  8. CLAIRYG [Suspect]
     Active Substance: HUMAN IMMUNOGLOBULIN G
     Dosage: 170 MG, UNK
     Route: 065
     Dates: start: 20130723
  9. CORTANCYL [Suspect]
     Active Substance: PREDNISONE
     Dosage: 15 MG, QD
     Route: 065
     Dates: start: 20130602, end: 20130726
  10. CORTANCYL [Suspect]
     Active Substance: PREDNISONE
     Dosage: UNK
  11. FIRDAPSE [Suspect]
     Active Substance: AMIFAMPRIDINE PHOSPHATE
     Indication: MYASTHENIC SYNDROME
     Dosage: 80 MG, 4X/DAY
     Route: 048
     Dates: start: 20090701, end: 20111207
  12. INEXIUM /01479302/ [Concomitant]
     Active Substance: ESOMEPRAZOLE MAGNESIUM
     Indication: PROPHYLAXIS AGAINST GASTROINTESTINAL ULCER
     Dosage: 20 MG, QD
     Route: 048
     Dates: start: 20100501
  13. SOLU-MEDROL [Suspect]
     Active Substance: METHYLPREDNISOLONE SODIUM SUCCINATE
     Dosage: 30 MG, UNK
     Route: 065
     Dates: start: 20110530, end: 20121012
  14. CORTANCYL [Suspect]
     Active Substance: PREDNISONE
     Dosage: 30 MG, QD
     Route: 065
     Dates: start: 20121127, end: 20130209
  15. CORTANCYL [Suspect]
     Active Substance: PREDNISONE
     Dosage: 10 MG, QD
     Route: 065
     Dates: start: 20130727, end: 20130827

REACTIONS (1)
  - Viral infection [Recovered/Resolved]

NARRATIVE: CASE EVENT DATE: 20130820
